FAERS Safety Report 23635634 (Version 1)
Quarter: 2024Q1

REPORT INFORMATION
  Report Type: Spontaneous
  Country: HR (occurrence: HR)
  Receive Date: 20240315
  Receipt Date: 20240315
  Transmission Date: 20240410
  Serious: Yes (Other)
  Sender: FDA-Public Use
  Company Number: None

PATIENT
  Sex: Female

DRUGS (2)
  1. OLANZAPINE [Suspect]
     Active Substance: OLANZAPINE
     Dosage: 10 MG OF OLANZAPINE 1 HOUR AGO?DAILY DOSE: 10 MILLIGRAM
     Route: 048
     Dates: start: 20231208, end: 20231208
  2. DIAZEPAM [Suspect]
     Active Substance: DIAZEPAM
     Dosage: DRANK 10 MG OF DIAZEPAM 1 HOUR AGO?DAILY DOSE: 10 MILLIGRAM
     Route: 048
     Dates: start: 20231208, end: 20231208

REACTIONS (1)
  - Suicide attempt [Unknown]

NARRATIVE: CASE EVENT DATE: 20231208
